FAERS Safety Report 5154086-X (Version None)
Quarter: 2006Q4

REPORT INFORMATION
  Report Type: 
  Country: None (occurrence: None)
  Receive Date: 20061116
  Receipt Date: 20061116
  Transmission Date: 20070319
  Serious: No
  Sender: FDA-Public Use
  Company Number: None

PATIENT
  Sex: Female
  Weight: 104.3273 kg

DRUGS (1)
  1. LOVASTATIN [Suspect]

REACTIONS (5)
  - ARTHRALGIA [None]
  - ASTHENIA [None]
  - FATIGUE [None]
  - PERIPHERAL COLDNESS [None]
  - POOR QUALITY SLEEP [None]
